FAERS Safety Report 7487395-X (Version None)
Quarter: 2011Q2

REPORT INFORMATION
  Report Type: 
  Country: None (occurrence: None)
  Receive Date: 20110518
  Receipt Date: 20110510
  Transmission Date: 20111010
  Serious: Yes (Hospitalization, Other)
  Sender: FDA-Public Use
  Company Number: US-JNJFOC-20110304723

PATIENT
  Sex: Female

DRUGS (3)
  1. LEVAQUIN [Suspect]
     Indication: BRONCHITIS
     Route: 048
     Dates: start: 20090301, end: 20090311
  2. LEVAQUIN [Suspect]
     Indication: COUGH
     Route: 048
     Dates: start: 20090301, end: 20090311
  3. LEVAQUIN [Suspect]
     Indication: BACTERIAL INFECTION
     Route: 048
     Dates: start: 20090301, end: 20090311

REACTIONS (3)
  - TENDON DISORDER [None]
  - TENDONITIS [None]
  - ROTATOR CUFF SYNDROME [None]
